FAERS Safety Report 23469608 (Version 1)
Quarter: 2024Q1

REPORT INFORMATION
  Report Type: Spontaneous
  Country: CN (occurrence: CN)
  Receive Date: 20240202
  Receipt Date: 20240202
  Transmission Date: 20240410
  Serious: Yes (Other)
  Sender: FDA-Public Use
  Company Number: CN-GILEAD-2024-0660248

PATIENT
  Age: 35 Year
  Sex: Female

DRUGS (2)
  1. HEPSERA [Suspect]
     Active Substance: ADEFOVIR DIPIVOXIL
     Indication: Chronic hepatitis B
     Dosage: 10 MG, QD, FOR 3 YEARS
     Route: 065
  2. ETANERCEPT [Concomitant]
     Active Substance: ETANERCEPT

REACTIONS (1)
  - Osteochondrosis [Recovered/Resolved]
